FAERS Safety Report 17508465 (Version 1)
Quarter: 2020Q1

REPORT INFORMATION
  Report Type: Spontaneous
  Country: US (occurrence: US)
  Receive Date: 20200306
  Receipt Date: 20200306
  Transmission Date: 20200409
  Serious: Yes (Life-Threatening, Other)
  Sender: FDA-Public Use
  Company Number: US-ACCORD-174839

PATIENT
  Age: 65 Year
  Sex: Female

DRUGS (9)
  1. ETOPOSIDE. [Suspect]
     Active Substance: ETOPOSIDE
     Indication: PRIMARY CARDIAC LYMPHOMA
  2. VINCRISTINE [Suspect]
     Active Substance: VINCRISTINE
     Indication: PRIMARY CARDIAC LYMPHOMA
  3. VINCRISTINE [Suspect]
     Active Substance: VINCRISTINE
     Indication: T-CELL LYMPHOMA
  4. DOXORUBICIN [Suspect]
     Active Substance: DOXORUBICIN
     Indication: PRIMARY CARDIAC LYMPHOMA
  5. CYCLOPHOSPHAMIDE/CYCLOPHOSPHAMIDE MONOHYDRATE [Suspect]
     Active Substance: CYCLOPHOSPHAMIDE
     Indication: PRIMARY CARDIAC LYMPHOMA
  6. PREDNISOLONE. [Suspect]
     Active Substance: PREDNISOLONE
     Indication: PRIMARY CARDIAC LYMPHOMA
  7. CYCLOPHOSPHAMIDE. [Suspect]
     Active Substance: CYCLOPHOSPHAMIDE
     Indication: PRIMARY CARDIAC LYMPHOMA
  8. ETOPOSIDE. [Suspect]
     Active Substance: ETOPOSIDE
     Indication: PRIMARY CARDIAC LYMPHOMA
  9. DOXORUBICIN [Suspect]
     Active Substance: DOXORUBICIN
     Indication: PRIMARY CARDIAC LYMPHOMA

REACTIONS (3)
  - Ventricular arrhythmia [Unknown]
  - Off label use [Unknown]
  - Oedema due to cardiac disease [Unknown]
